FAERS Safety Report 5783629-8 (Version None)
Quarter: 2008Q2

REPORT INFORMATION
  Report Type: 
  Country: None (occurrence: None)
  Receive Date: 20080605
  Receipt Date: 20080320
  Transmission Date: 20081010
  Serious: No
  Sender: FDA-Public Use
  Company Number: A0716619A

PATIENT
  Sex: Female

DRUGS (2)
  1. ALLI [Suspect]
  2. ANTIHYPERTENSIVE [Concomitant]

REACTIONS (2)
  - CHEST PAIN [None]
  - PAIN [None]
